FAERS Safety Report 4620824-5 (Version None)
Quarter: 2005Q2

REPORT INFORMATION
  Report Type: 
  Country: None (occurrence: None)
  Receive Date: 20050315
  Receipt Date: 20050201
  Transmission Date: 20051028
  Serious: No
  Sender: FDA-Public Use
  Company Number: US-YAMANOUCHI-YPA20050052

PATIENT
  Age: 60 Year
  Sex: Female
  Weight: 61.2356 kg

DRUGS (6)
  1. VESICARE [Suspect]
     Indication: BLADDER DISORDER
     Dosage: 5 MG QD PO
     Route: 048
     Dates: start: 20050126
  2. METFORMIN HCL [Concomitant]
  3. ACTOS [Concomitant]
  4. ARICEPT [Concomitant]
  5. VAGIFEM [Concomitant]
  6. LIPITOR [Concomitant]

REACTIONS (1)
  - DRUG INEFFECTIVE [None]
